FAERS Safety Report 12225279 (Version 4)
Quarter: 2016Q2

REPORT INFORMATION
  Report Type: Spontaneous
  Country: US (occurrence: US)
  Receive Date: 20160331
  Receipt Date: 20160626
  Transmission Date: 20160815
  Serious: Yes (Hospitalization)
  Sender: FDA-Public Use
  Company Number: US-VERTEX PHARMACEUTICALS-2016-001950

PATIENT
  Age: 19 Year
  Sex: Male
  Weight: 85 kg

DRUGS (14)
  1. FLONASE [Concomitant]
     Active Substance: FLUTICASONE PROPIONATE
     Dosage: 1 SPRAY BY NASAL ROUTE, BID. IN EACH NOSTRIL
     Route: 045
  2. SODIUM CHLORIDE. [Concomitant]
     Active Substance: SODIUM CHLORIDE
     Dosage: 3 ML BY NEBULIZATION, BID
     Route: 055
  3. PRILOSEC [Concomitant]
     Active Substance: OMEPRAZOLE MAGNESIUM
     Dosage: 1 DF, BID
     Route: 048
  4. PULMOZYME [Concomitant]
     Active Substance: DORNASE ALFA
     Dosage: 2.5 ML BY NEBULIZATION, BID
     Route: 055
  5. AQUADEKS [Concomitant]
     Active Substance: MINERALS\VITAMINS
     Dosage: 2 DF, BID FOR 14 DAYS
     Route: 048
  6. DRISDOL [Concomitant]
     Active Substance: ERGOCALCIFEROL
     Dosage: 1 DF, EVERY 7 DAYS
     Route: 048
  7. CLARITIN [Concomitant]
     Active Substance: LORATADINE
     Dosage: 1 DF, QD
     Route: 048
  8. CREON [Concomitant]
     Active Substance: PANCRELIPASE AMYLASE\PANCRELIPASE LIPASE\PANCRELIPASE PROTEASE
     Dosage: 6 CAPS WITH MEALS (AT LEAST TID) AND 3 WITH SNACKS (ATLEASR TID)
     Route: 048
  9. TOBI [Concomitant]
     Active Substance: TOBRAMYCIN
     Dosage: 5 ML BY NEBULIZATION, BID. ONE MONTH ON AND ONE MONTH OFF
     Route: 055
     Dates: end: 20160412
  10. SINGULAIR [Concomitant]
     Active Substance: MONTELUKAST SODIUM
     Dosage: 1 DF, EVERY EVENING
     Route: 048
  11. SYMBICORT [Concomitant]
     Active Substance: BUDESONIDE\FORMOTEROL FUMARATE DIHYDRATE
     Dosage: 2 PUFFS BY INHALATION, BID
     Route: 055
  12. PROVENTIL [Concomitant]
     Active Substance: ALBUTEROL
     Dosage: 3 ML BY NEBULIZATION, QID. FOLLOWED BY CGEST PHYSIOTHERAPY VIA THE VEST E-PRESCRIBE
     Route: 055
  13. HYPERSAL [Concomitant]
     Dosage: UNK, BID
  14. ORKAMBI [Suspect]
     Active Substance: IVACAFTOR\LUMACAFTOR
     Indication: CYSTIC FIBROSIS
     Dosage: 400/250 MG, 2 DF, BID
     Route: 048
     Dates: start: 20160218, end: 201603

REACTIONS (4)
  - Pneumonia [Recovered/Resolved]
  - Wheezing [Recovered/Resolved]
  - Respiration abnormal [Recovering/Resolving]
  - Infective pulmonary exacerbation of cystic fibrosis [Recovered/Resolved]

NARRATIVE: CASE EVENT DATE: 201602
